FAERS Safety Report 9387107 (Version 1)
Quarter: 2013Q3

REPORT INFORMATION
  Report Type: Spontaneous
  Country: TR (occurrence: TR)
  Receive Date: 20130708
  Receipt Date: 20130708
  Transmission Date: 20140515
  Serious: Yes (Hospitalization)
  Sender: FDA-Public Use
  Company Number: PHHY2013TR063272

PATIENT
  Age: 24 Year
  Sex: Male

DRUGS (1)
  1. PREDNISOLONE [Suspect]
     Indication: VIITH NERVE PARALYSIS
     Dosage: 80 MG, DAILY
     Route: 048

REACTIONS (11)
  - Personality disorder [Unknown]
  - Mania [Recovering/Resolving]
  - Psychomotor hyperactivity [Recovering/Resolving]
  - Flight of ideas [Recovering/Resolving]
  - Overconfidence [Recovering/Resolving]
  - Grandiosity [Recovering/Resolving]
  - Frustration [Recovering/Resolving]
  - Speech disorder [Recovering/Resolving]
  - Insomnia [Recovering/Resolving]
  - Irritability [Recovering/Resolving]
  - Euphoric mood [Recovering/Resolving]
